FAERS Safety Report 4370896-0 (Version None)
Quarter: 2004Q2

REPORT INFORMATION
  Report Type: 
  Country: None (occurrence: None)
  Receive Date: 20040601
  Receipt Date: 20040519
  Transmission Date: 20050107
  Serious: Yes (Hospitalization)
  Sender: FDA-Public Use
  Company Number: 2004-02317

PATIENT
  Age: 48 Year
  Sex: Male

DRUGS (2)
  1. PREDNISOLONE [Suspect]
     Indication: GLOMERULONEPHRITIS
     Dosage: 30 MG, DAILY, ORAL; 60 MG, DAILY, ORAL
     Route: 048
  2. CYCLOPHOSPHAMIDE [Concomitant]

REACTIONS (3)
  - CONDITION AGGRAVATED [None]
  - HEPATITIS B [None]
  - PANCREATITIS ACUTE [None]
